FAERS Safety Report 17934347 (Version 1)
Quarter: 2020Q2

REPORT INFORMATION
  Report Type: Spontaneous
  Country: US (occurrence: US)
  Receive Date: 20200623
  Receipt Date: 20200623
  Transmission Date: 20200714
  Serious: No
  Sender: FDA-Public Use
  Company Number: None

PATIENT
  Sex: Male

DRUGS (3)
  1. TENOFOVIR DISOPROXIL FUMARATE 300MG AUROBINDO PHARMA [Suspect]
     Active Substance: TENOFOVIR DISOPROXIL FUMARATE
     Indication: LIVER TRANSPLANT
     Route: 048
     Dates: start: 20190830
  2. MYCOPHENOLIC ACID. [Concomitant]
     Active Substance: MYCOPHENOLIC ACID
  3. TACROLIMUS. [Concomitant]
     Active Substance: TACROLIMUS

REACTIONS (4)
  - Malaise [None]
  - Influenza like illness [None]
  - Bone pain [None]
  - Fatigue [None]
